FAERS Safety Report 16445466 (Version 2)
Quarter: 2019Q2

REPORT INFORMATION
  Report Type: Spontaneous
  Country: NL (occurrence: NL)
  Receive Date: 20190618
  Receipt Date: 20190626
  Transmission Date: 20190711
  Serious: Yes (Life-Threatening, Hospitalization)
  Sender: FDA-Public Use
  Company Number: PHHY2019NL138210

PATIENT
  Age: 23 Year
  Sex: Female
  Weight: 43 kg

DRUGS (1)
  1. KISQALI [Suspect]
     Active Substance: RIBOCICLIB
     Indication: NEUROBLASTOMA RECURRENT
     Dosage: 600 MG, QD
     Route: 065
     Dates: start: 20190328

REACTIONS (2)
  - Neutropenia [Recovered/Resolved]
  - Meningococcal sepsis [Recovered/Resolved]

NARRATIVE: CASE EVENT DATE: 20190520
